FAERS Safety Report 18618475 (Version 1)
Quarter: 2020Q4

REPORT INFORMATION
  Report Type: Spontaneous
  Country: US (occurrence: US)
  Receive Date: 20201215
  Receipt Date: 20201215
  Transmission Date: 20210114
  Serious: No
  Sender: FDA-Public Use
  Company Number: US-PFIZER INC-2020236942

PATIENT
  Age: 87 Year
  Sex: Male

DRUGS (3)
  1. INLYTA [Suspect]
     Active Substance: AXITINIB
     Dosage: 2 MG, CYCLIC (TAKE 2 TABS= 2MG TOTAL BY MOUTH TWO TIMES A DAY FOR 21 DAYS)
     Route: 048
  2. INLYTA [Suspect]
     Active Substance: AXITINIB
     Indication: RENAL CANCER
     Dosage: 3 MG, CYCLIC (TAKE 3 TABS = 3 MG TOTAL BY MOUTH TWO TIMES A DAY FOR 21 DAYS)
     Route: 048
  3. INLYTA [Suspect]
     Active Substance: AXITINIB
     Dosage: 1 MG

REACTIONS (1)
  - Gastric disorder [Unknown]
